FAERS Safety Report 9223254 (Version 1)
Quarter: 2013Q2

REPORT INFORMATION
  Report Type: Spontaneous
  Country: IT (occurrence: IT)
  Receive Date: 20130410
  Receipt Date: 20130410
  Transmission Date: 20140414
  Serious: Yes (Hospitalization)
  Sender: FDA-Public Use
  Company Number: IT-PFIZER INC-2013112967

PATIENT
  Sex: Female

DRUGS (1)
  1. TRIAZOLAM [Suspect]
     Indication: INTENTIONAL SELF-INJURY
     Dosage: 15 DF, TOTAL DOSE
     Route: 048
     Dates: start: 20130210, end: 20130210

REACTIONS (2)
  - Poisoning [Recovering/Resolving]
  - Loss of consciousness [Recovering/Resolving]
